FAERS Safety Report 5832405-6 (Version None)
Quarter: 2008Q3

REPORT INFORMATION
  Report Type: 
  Country: None (occurrence: None)
  Receive Date: 20080731
  Receipt Date: 20080731
  Transmission Date: 20090109
  Serious: Yes (Disabling)
  Sender: FDA-Public Use
  Company Number: None

PATIENT
  Age: 44 Year
  Sex: Female
  Weight: 67.1324 kg

DRUGS (1)
  1. TOPAMAX [Suspect]
     Indication: HEADACHE
     Dosage: 25 MG BID PO
     Route: 048
     Dates: start: 20080719, end: 20080727

REACTIONS (4)
  - ANGLE CLOSURE GLAUCOMA [None]
  - PAIN [None]
  - VISION BLURRED [None]
  - VISUAL ACUITY REDUCED [None]
